FAERS Safety Report 8991870 (Version 1)
Quarter: 2012Q4

REPORT INFORMATION
  Report Type: 
  Country: JP (occurrence: FR)
  Receive Date: 20121231
  Receipt Date: 20121231
  Transmission Date: 20130627
  Serious: Yes (Hospitalization)
  Sender: FDA-Public Use
  Company Number: PHHY2012FR121362

PATIENT
  Age: 3 Month
  Sex: Male
  Weight: 6 kg

DRUGS (3)
  1. TEGRETOL [Suspect]
     Indication: EPILEPSY
     Dosage: 2 ml, daily
     Route: 048
     Dates: start: 20121005, end: 20121113
  2. TEGRETOL [Suspect]
     Dosage: 3 ml, TID
     Route: 048
     Dates: start: 20121113, end: 20121218
  3. TEGRETOL [Suspect]
     Dosage: 2 ml, daily
     Dates: start: 20121118, end: 20121124

REACTIONS (1)
  - Neutropenia [Recovered/Resolved]
